FAERS Safety Report 18477258 (Version 1)
Quarter: 2020Q4

REPORT INFORMATION
  Report Type: Spontaneous
  Country: GB (occurrence: GB)
  Receive Date: 20201107
  Receipt Date: 20201107
  Transmission Date: 20210114
  Serious: Yes (Other)
  Sender: FDA-Public Use
  Company Number: GB-TEVA-2020-GB-1844910

PATIENT
  Age: 84 Year
  Sex: Male
  Weight: 65 kg

DRUGS (13)
  1. FLUVASTATIN [Concomitant]
     Active Substance: FLUVASTATIN SODIUM
     Dosage: 1 DOSAGE FORMS DAILY; IN EARLY EVENING
     Dates: start: 20141006
  2. CHLORAMPHENICOL [Suspect]
     Active Substance: CHLORAMPHENICOL
     Dosage: TO AFFECTED EYE(S)
     Dates: start: 20200916
  3. ACETYLSALICYLIC ACID [Concomitant]
     Active Substance: ASPIRIN
     Dates: start: 20141006
  4. GLYCERYL TRINITRATE [Concomitant]
     Active Substance: NITROGLYCERIN
     Dosage: ONE TO TWO PUFFS UNDER THE TONGUE AS DIRECTED
     Route: 060
     Dates: start: 20141006
  5. IMDUR [Concomitant]
     Active Substance: ISOSORBIDE MONONITRATE
     Dosage: (LEAVE AS IMDUR)
     Dates: start: 20141006
  6. FOSTAIR [Concomitant]
     Active Substance: BECLOMETHASONE\FORMOTEROL
     Dosage: TWO PUFFS TO BE INHALED TWICE DAILY
     Dates: start: 20150618
  7. LOSARTAN. [Concomitant]
     Active Substance: LOSARTAN
     Dates: start: 20170614
  8. FUSIDIC ACID [Concomitant]
     Active Substance: FUSIDIC ACID
     Dosage: DROP, INTO AFFECTED EYE(S)
     Dates: start: 20201007
  9. DESUNIN [Concomitant]
     Active Substance: CHOLECALCIFEROL
     Dates: start: 20181211
  10. EZETIMIBE. [Concomitant]
     Active Substance: EZETIMIBE
     Dates: start: 20171128
  11. ALLOPURINOL. [Concomitant]
     Active Substance: ALLOPURINOL
     Dates: start: 20150717
  12. CLOPIDOGREL [Concomitant]
     Active Substance: CLOPIDOGREL BISULFATE
     Dosage: INDEFINITELY
     Dates: start: 20171010
  13. VERAPAMIL HYDROCHLORIDE. [Concomitant]
     Active Substance: VERAPAMIL HYDROCHLORIDE
     Dosage: 2 IN MORNING, 1 AT NIGHT
     Dates: start: 20180322

REACTIONS (1)
  - Dyspnoea [Recovered/Resolved]

NARRATIVE: CASE EVENT DATE: 20201007
